FAERS Safety Report 11363619 (Version 2)
Quarter: 2015Q3

REPORT INFORMATION
  Report Type: Spontaneous
  Country: TR (occurrence: TR)
  Receive Date: 20150811
  Receipt Date: 20150825
  Transmission Date: 20151125
  Serious: Yes (Other)
  Sender: FDA-Public Use
  Company Number: PHHY2015TR093165

PATIENT
  Age: 55 Year
  Sex: Male

DRUGS (1)
  1. ZELMAC [Suspect]
     Active Substance: TEGASEROD
     Indication: INFLAMMATORY BOWEL DISEASE
     Dosage: 6 MG, QD
     Route: 048

REACTIONS (2)
  - Suspected counterfeit product [Unknown]
  - Inflammatory bowel disease [Unknown]
